FAERS Safety Report 4383752-9 (Version None)
Quarter: 2004Q2

REPORT INFORMATION
  Report Type: 
  Country: None (occurrence: None)
  Receive Date: 20040608
  Receipt Date: 20030617
  Transmission Date: 20050107
  Serious: Yes (Other)
  Sender: FDA-Public Use
  Company Number: 200312058BCC

PATIENT
  Age: 47 Year
  Sex: Female
  Weight: 135.6255 kg

DRUGS (2)
  1. ALEVE [Suspect]
     Indication: PAIN
     Dosage: 220 MG, PRN, ORAL
     Route: 048
     Dates: start: 20030601
  2. ZYRTEC [Concomitant]

REACTIONS (4)
  - ABDOMINAL DISCOMFORT [None]
  - ANAPHYLACTIC REACTION [None]
  - DYSPNOEA [None]
  - PRURITUS [None]
